FAERS Safety Report 9102578 (Version 2)
Quarter: 2013Q1

REPORT INFORMATION
  Report Type: Spontaneous
  Country: AU (occurrence: AU)
  Receive Date: 20130220
  Receipt Date: 20130305
  Transmission Date: 20140127
  Serious: Yes (Death)
  Sender: FDA-Public Use
  Company Number: AU-B.I. PHARMACEUTICALS,INC./RIDGEFIELD-2013-AU-00131AU

PATIENT
  Age: 86 Year
  Sex: Male
  Weight: 60 kg

DRUGS (16)
  1. PRADAXA [Suspect]
     Indication: CEREBROVASCULAR ACCIDENT PROPHYLAXIS
     Dosage: 220 MG
     Dates: start: 20110823
  2. PRADAXA [Suspect]
     Indication: ATRIAL FIBRILLATION
  3. ALDACTONE [Concomitant]
     Dosage: 25 MG
     Route: 048
  4. AMITRIPTYLINE [Concomitant]
     Dosage: 25 MG
     Route: 048
  5. ANGININE [Concomitant]
     Dosage: PRN
     Route: 060
  6. ASPIRIN [Concomitant]
     Dosage: 100 MG
     Route: 048
  7. BISOPROLOL [Concomitant]
     Indication: CARDIAC FAILURE CONGESTIVE
     Dosage: 1.25 MG
     Route: 048
  8. COLCHICINE [Concomitant]
     Indication: GOUT
     Dosage: 1000 MCG
     Route: 048
  9. DIGOXIN [Concomitant]
     Dosage: 62.5 MCG
     Route: 048
  10. FUROSEMIDE [Concomitant]
     Indication: CARDIAC FAILURE CONGESTIVE
     Dosage: 120 MG
     Route: 048
  11. NEXIUM [Concomitant]
     Dosage: 40 MG
     Route: 048
  12. NITROLINGUAL [Concomitant]
     Indication: MYOCARDIAL ISCHAEMIA
     Dosage: PRN
     Route: 060
  13. TEMAZEPAM [Concomitant]
     Dosage: 10 MG
     Route: 048
  14. VENTOLIN [Concomitant]
     Dosage: 800 MCG
     Route: 048
  15. TRANSIDERM [Concomitant]
     Indication: MYOCARDIAL ISCHAEMIA
     Dosage: 5 MG / 24 HOURS
     Route: 062
  16. DITHIAZIDE [Concomitant]
     Indication: CARDIAC FAILURE CONGESTIVE
     Dosage: 12.5 MG
     Route: 048

REACTIONS (1)
  - Cardiac failure congestive [Fatal]
